FAERS Safety Report 22969483 (Version 2)
Quarter: 2023Q4

REPORT INFORMATION
  Report Type: Spontaneous
  Country: US (occurrence: US)
  Receive Date: 20230922
  Receipt Date: 20231212
  Transmission Date: 20240109
  Serious: Yes (Other)
  Sender: FDA-Public Use
  Company Number: US-BRISTOL-MYERS SQUIBB COMPANY-BMS-2019-124738

PATIENT
  Age: 5 Year
  Sex: Female

DRUGS (8)
  1. TRIAMCINOLONE ACETONIDE [Suspect]
     Active Substance: TRIAMCINOLONE ACETONIDE
     Indication: Vitrectomy
     Dosage: SUB-TENON^S
     Route: 031
  2. DEXAMETHASONE [Suspect]
     Active Substance: DEXAMETHASONE
     Indication: Vitrectomy
     Dosage: UNK
     Route: 057
  3. DEXAMETHASONE\NEOMYCIN SULFATE\POLYMYXIN B SULFATE [Concomitant]
     Active Substance: DEXAMETHASONE\NEOMYCIN SULFATE\POLYMYXIN B SULFATE
     Indication: Vitrectomy
     Dosage: UNK
     Route: 061
  4. ATROPINE [Concomitant]
     Active Substance: ATROPINE\ATROPINE SULFATE
     Indication: Vitrectomy
     Dosage: DROPS
  5. CEFAZOLIN [Concomitant]
     Active Substance: CEFAZOLIN
     Indication: Vitrectomy
     Dosage: UNK
     Route: 057
  6. ROPIVACAINE [Concomitant]
     Active Substance: ROPIVACAINE
     Indication: Anaesthesia
     Dosage: UNK
  7. LIDOCAINE [Concomitant]
     Active Substance: LIDOCAINE
     Indication: Anaesthesia
     Dosage: UNK
  8. VORETIGENE NEPARVOVEC RZYL [Concomitant]
     Indication: Leber^s congenital amaurosis
     Dosage: SUBRETINAL INJECTION
     Route: 047

REACTIONS (2)
  - Ocular hypertension [Recovering/Resolving]
  - Intentional product use issue [Unknown]
